FAERS Safety Report 9395589 (Version 1)
Quarter: 2013Q3

REPORT INFORMATION
  Report Type: Spontaneous
  Country: US (occurrence: US)
  Receive Date: 20130711
  Receipt Date: 20130711
  Transmission Date: 20140515
  Serious: Yes (Death, Other)
  Sender: FDA-Public Use
  Company Number: PHHY2013US073208

PATIENT
  Age: 15 Year
  Sex: Male

DRUGS (2)
  1. PSEUDOEPHEDRINE [Suspect]
  2. PHENYLPROPANOLAMINE [Suspect]

REACTIONS (3)
  - Gun shot wound [Fatal]
  - Completed suicide [Fatal]
  - Toxicity to various agents [Unknown]
